FAERS Safety Report 5951202-4 (Version None)
Quarter: 2008Q4

REPORT INFORMATION
  Report Type: 
  Country: None (occurrence: None)
  Receive Date: 20081111
  Receipt Date: 20081111
  Transmission Date: 20090506
  Serious: Yes (Disabling)
  Sender: FDA-Public Use
  Company Number: None

PATIENT
  Age: 57 Year
  Sex: Female
  Weight: 72.5755 kg

DRUGS (1)
  1. LEVOCARNITINE [Suspect]
     Indication: MITOCHONDRIAL CYTOPATHY
     Dosage: 1000MG TID IV DRIP
     Route: 041
     Dates: start: 20081105, end: 20081106

REACTIONS (7)
  - CHILLS [None]
  - DYSPNOEA [None]
  - FLUSHING [None]
  - HEADACHE [None]
  - INFUSION RELATED REACTION [None]
  - NO REACTION ON PREVIOUS EXPOSURE TO DRUG [None]
  - PRODUCT QUALITY ISSUE [None]
